FAERS Safety Report 13607075 (Version 2)
Quarter: 2017Q2

REPORT INFORMATION
  Report Type: Spontaneous
  Country: DK (occurrence: DK)
  Receive Date: 20170602
  Receipt Date: 20170608
  Transmission Date: 20170830
  Serious: Yes (Other)
  Sender: FDA-Public Use
  Company Number: PHHY2017DK074987

PATIENT
  Sex: Female

DRUGS (13)
  1. METHOTREXATE. [Suspect]
     Active Substance: METHOTREXATE
     Dosage: DELAYED INTENSIFICATION PHASE
     Route: 037
  2. METHOTREXATE. [Suspect]
     Active Substance: METHOTREXATE
     Dosage: MAINTENANCE-I
     Route: 048
  3. CYTARABINE. [Suspect]
     Active Substance: CYTARABINE
     Indication: ACUTE LYMPHOCYTIC LEUKAEMIA
     Dosage: DELAYED INTENSIFICATION PHASE
     Route: 065
  4. TIOGUANINE [Interacting]
     Active Substance: THIOGUANINE ANHYDROUS
     Indication: ACUTE LYMPHOCYTIC LEUKAEMIA
     Dosage: 60 MG/M2, DELAYED INTENSIFICATION TREATMENT PHASE
     Route: 048
  5. ASPARAGINASE [Interacting]
     Active Substance: ASPARAGINASE
     Dosage: DELAYED INTENSIFICATION PHASE
     Route: 065
  6. VINCRISTINE [Suspect]
     Active Substance: VINCRISTINE
     Dosage: INDUCTION PHASE
     Route: 065
  7. METHOTREXATE. [Suspect]
     Active Substance: METHOTREXATE
     Dosage: 20 MG/M2, QW, MAINTENANCE-I
     Route: 048
  8. TIOGUANINE [Interacting]
     Active Substance: THIOGUANINE ANHYDROUS
     Dosage: DELAYED INTENSIFICATION TREATMENT PHASE
     Route: 048
  9. DEXAMETHASONE. [Suspect]
     Active Substance: DEXAMETHASONE
     Indication: ACUTE LYMPHOCYTIC LEUKAEMIA
     Dosage: MAINTENANCE 1 PHASE OF TREATMENT
     Route: 065
  10. MERCAPTOPURINE. [Interacting]
     Active Substance: MERCAPTOPURINE
     Indication: ACUTE LYMPHOCYTIC LEUKAEMIA
     Dosage: 75 MG/M2, QW
     Route: 048
  11. VINCRISTINE [Suspect]
     Active Substance: VINCRISTINE
     Indication: ACUTE LYMPHOCYTIC LEUKAEMIA
     Dosage: DELAYED INTENSIFICATION PHASE
     Route: 065
  12. ASPARAGINASE [Interacting]
     Active Substance: ASPARAGINASE
     Indication: ACUTE LYMPHOCYTIC LEUKAEMIA
     Dosage: CONSOLIDATION PHASE: 1,000 IU/M2 INTRAMUSCULARLY EVERY 2 WEEKS
     Route: 030
  13. METHOTREXATE. [Suspect]
     Active Substance: METHOTREXATE
     Indication: ACUTE LYMPHOCYTIC LEUKAEMIA
     Dosage: INDUCTION PHASE
     Route: 037

REACTIONS (2)
  - Venoocclusive liver disease [Unknown]
  - Drug interaction [Unknown]
